FAERS Safety Report 23615614 (Version 2)
Quarter: 2024Q1

REPORT INFORMATION
  Report Type: Report from Study
  Country: US (occurrence: US)
  Receive Date: 20240311
  Receipt Date: 20240324
  Transmission Date: 20240410
  Serious: Yes (Other)
  Sender: FDA-Public Use
  Company Number: US-MTPC-MTDA2024-0004482

PATIENT
  Sex: Male

DRUGS (2)
  1. RADICAVA ORS [Suspect]
     Active Substance: EDARAVONE
     Indication: Amyotrophic lateral sclerosis
     Dosage: 5 MILLILITER 14 DAYS ON, 14 DAYS OFF
     Route: 048
     Dates: end: 20240226
  2. RADICAVA ORS [Suspect]
     Active Substance: EDARAVONE
     Indication: Amyotrophic lateral sclerosis
     Dosage: 5 MILLILITER 14 DAYS ON, 14 DAYS OFF
     Route: 048
     Dates: end: 20240226

REACTIONS (6)
  - Hallucination [Unknown]
  - Confusional state [Unknown]
  - Memory impairment [Unknown]
  - Intellectual disability [Unknown]
  - Fall [Unknown]
  - Headache [Unknown]
